FAERS Safety Report 9026589 (Version 3)
Quarter: 2013Q1

REPORT INFORMATION
  Report Type: Spontaneous
  Country: JP (occurrence: None)
  Receive Date: 20130109
  Receipt Date: 20130206
  Transmission Date: 20140127
  Serious: Yes (Death)
  Sender: FDA-Public Use
  Company Number: DSJ-2012-25301

PATIENT
  Age: 47 Year
  Sex: Male
  Weight: 102.9 kg

DRUGS (15)
  1. OLMETEC [Suspect]
     Indication: HYPERTENSION
     Route: 048
     Dates: start: 20121020, end: 20121226
  2. CS-747S [Suspect]
     Indication: ISCHAEMIC STROKE
     Dosage: BLINDED
     Route: 048
     Dates: start: 20121005, end: 20121226
  3. CRESTOR [Suspect]
     Indication: DYSLIPIDAEMIA
     Route: 048
     Dates: start: 20120829, end: 20121226
  4. METGLUCO [Suspect]
     Indication: DIABETES MELLITUS
     Dosage: (250 MG,2 IN 1 D)
     Route: 048
     Dates: start: 20120829, end: 20121226
  5. PLAVIX (CLOPIDOGREL) (TABLET) (CLOPIDOGREL) [Concomitant]
  6. PABRON GOLD A [Concomitant]
  7. PL (CAFFEINE, SALICYLAMIDE, PARACETAMOL, PROMETHAZINE METHYLENE DISALICYLATE) (GRANULES) (CAFFEINE, SALICYLAMIDE, PARACETAMOL, PROMETHAZINE METHYLENE DISALICYLATE) [Concomitant]
  8. MUCODYNE (CARBOCISTEINE) (TABLET) (CARBOCISTEINE) [Concomitant]
  9. CRAVIT (LEVOFLOXACIN) (TABLET) (LEVOFLOXACIN) [Concomitant]
  10. NEGMIN GARGLE (POVIDONE-IODINE) (GARGLE) (POVIDOONE-IODINE) [Concomitant]
  11. LOXONIN (LOXOPROFEN SODIUM) (TABLET) (LOXOPROFEN SODIUM) [Concomitant]
  12. VOLTAREN SUPPO (DICLOFENAC) (SUPPOSITORY) (DICLOFENAC) [Concomitant]
  13. KIOFEVA (PARACETAMOL) (PARACETAMOL) [Concomitant]
  14. VEEN-F [Concomitant]
  15. BIOFERMIN [Concomitant]

REACTIONS (12)
  - Cardiac death [None]
  - Nasopharyngitis [None]
  - Aphagia [None]
  - Prerenal failure [None]
  - Gastroenteritis [None]
  - Dehydration [None]
  - Blood pressure systolic increased [None]
  - Cerebral disorder [None]
  - Cardiovascular disorder [None]
  - Road traffic accident [None]
  - Headache [None]
  - Chest pain [None]
